FAERS Safety Report 25130824 (Version 1)
Quarter: 2025Q1

REPORT INFORMATION
  Report Type: Spontaneous
  Country: US (occurrence: US)
  Receive Date: 20250327
  Receipt Date: 20250327
  Transmission Date: 20250409
  Serious: Yes (Other)
  Sender: TEVA
  Company Number: US-TEVA-VS-3311892

PATIENT

DRUGS (1)
  1. LISDEXAMFETAMINE DIMESYLATE [Suspect]
     Active Substance: LISDEXAMFETAMINE DIMESYLATE
     Indication: Product used for unknown indication
     Route: 065

REACTIONS (5)
  - Dizziness [Unknown]
  - Thinking abnormal [Unknown]
  - Anxiety [Unknown]
  - Mood altered [Unknown]
  - Dizziness [Unknown]

NARRATIVE: CASE EVENT DATE: 20250316
